FAERS Safety Report 4688313-X (Version None)
Quarter: 2005Q2

REPORT INFORMATION
  Report Type: 
  Country: None (occurrence: None)
  Receive Date: 20050610
  Receipt Date: 20050512
  Transmission Date: 20051028
  Serious: Yes (Life-Threatening, Hospitalization, Disabling)
  Sender: FDA-Public Use
  Company Number: US-MERCK-0505USA01597

PATIENT
  Age: 72 Year
  Sex: Female

DRUGS (15)
  1. VIOXX [Suspect]
     Indication: RHEUMATOID ARTHRITIS
     Route: 048
     Dates: start: 20020709, end: 20030122
  2. VIOXX [Suspect]
     Route: 048
     Dates: start: 20030820, end: 20041025
  3. VIOXX [Suspect]
     Indication: OSTEOARTHRITIS
     Route: 048
     Dates: start: 20020709, end: 20030122
  4. VIOXX [Suspect]
     Route: 048
     Dates: start: 20030820, end: 20041025
  5. XANAX [Concomitant]
     Route: 065
  6. LEXAPRO [Concomitant]
     Route: 065
  7. CLARITIN [Concomitant]
     Route: 065
  8. COLACE [Concomitant]
     Route: 065
  9. AMBIEN [Concomitant]
     Route: 065
  10. SYNTHROID [Concomitant]
     Route: 065
  11. PREMARIN [Concomitant]
     Route: 065
  12. VALIUM [Concomitant]
     Route: 065
  13. VITAMINS (UNSPECIFIED) [Concomitant]
     Route: 065
  14. FOLIC ACID [Concomitant]
     Route: 065
  15. DARVOCET-N 100 [Concomitant]
     Route: 065

REACTIONS (7)
  - BLOOD PRESSURE INCREASED [None]
  - CEREBROVASCULAR ACCIDENT [None]
  - DYSPNOEA [None]
  - FEELING ABNORMAL [None]
  - PAIN IN EXTREMITY [None]
  - PYREXIA [None]
  - URINARY TRACT INFECTION [None]
